FAERS Safety Report 13658266 (Version 1)
Quarter: 2017Q2

REPORT INFORMATION
  Report Type: Spontaneous
  Country: IL (occurrence: IL)
  Receive Date: 20170616
  Receipt Date: 20170616
  Transmission Date: 20170830
  Serious: Yes (Hospitalization, Other)
  Sender: FDA-Public Use
  Company Number: IL-SHIRE-IL201712788

PATIENT
  Age: 91 Year
  Sex: Male

DRUGS (1)
  1. VPRIV [Suspect]
     Active Substance: VELAGLUCERASE ALFA
     Indication: PRODUCT USED FOR UNKNOWN INDICATION
     Dosage: 2000 IU, 1X/2WKS
     Route: 041
     Dates: start: 200911

REACTIONS (3)
  - Arrhythmia [Unknown]
  - Cardiac valve disease [Unknown]
  - Tachycardia [Unknown]

NARRATIVE: CASE EVENT DATE: 20170529
